FAERS Safety Report 9149536 (Version 1)
Quarter: 2013Q1

REPORT INFORMATION
  Report Type: Spontaneous
  Country: JP (occurrence: JP)
  Receive Date: 20130308
  Receipt Date: 20130308
  Transmission Date: 20140127
  Serious: Yes (Other)
  Sender: FDA-Public Use
  Company Number: JP-PFIZER INC-2013035652

PATIENT
  Age: 78 Year
  Sex: Female

DRUGS (2)
  1. SALAZOPYRIN [Suspect]
     Indication: ENTEROCOLITIS
     Dosage: 1000 MG, 2X/DAY
     Route: 048
     Dates: start: 20130123, end: 20130128
  2. FULCALIQ [Suspect]
     Indication: NUTRITIONAL SUPPLEMENTATION
     Dosage: 903 ML, 1X/DAY
     Route: 042
     Dates: start: 20130119

REACTIONS (1)
  - Hyperkalaemia [Recovered/Resolved]
